FAERS Safety Report 9495694 (Version 1)
Quarter: 2013Q3

REPORT INFORMATION
  Report Type: Report from Study
  Country: CA (occurrence: CA)
  Receive Date: 20130903
  Receipt Date: 20130903
  Transmission Date: 20140515
  Serious: Yes (Other)
  Sender: FDA-Public Use
  Company Number: CA-TEVA-429613USA

PATIENT
  Age: 8 Year
  Sex: Female

DRUGS (2)
  1. COPAXONE [Suspect]
     Indication: MULTIPLE SCLEROSIS
     Dates: start: 20130211
  2. VITAMIN D [Concomitant]

REACTIONS (2)
  - Choking [Recovered/Resolved]
  - Depressed level of consciousness [Recovered/Resolved]
